FAERS Safety Report 7032819-5 (Version None)
Quarter: 2010Q4

REPORT INFORMATION
  Report Type: 
  Country: None (occurrence: None)
  Receive Date: 20101005
  Receipt Date: 20100924
  Transmission Date: 20110411
  Serious: Yes (Hospitalization, Other)
  Sender: FDA-Public Use
  Company Number: 20108970

PATIENT
  Sex: Male

DRUGS (1)
  1. LIORESAL [Suspect]
     Indication: MUSCLE SPASTICITY
     Dosage: 600 MCG, DAILY, INTRATHECAL
     Route: 037

REACTIONS (8)
  - DEVICE BREAKAGE [None]
  - DEVICE MALFUNCTION [None]
  - MEDICAL DEVICE SITE REACTION [None]
  - MUSCLE SPASTICITY [None]
  - OVERDOSE [None]
  - PAIN [None]
  - PYREXIA [None]
  - RESPIRATORY DEPRESSION [None]
